FAERS Safety Report 16956382 (Version 1)
Quarter: 2019Q4

REPORT INFORMATION
  Report Type: Spontaneous
  Country: US (occurrence: US)
  Receive Date: 20191024
  Receipt Date: 20191024
  Transmission Date: 20200122
  Serious: No
  Sender: FDA-Public Use
  Company Number: US-TEVA-2019-US-1127727

PATIENT
  Sex: Male

DRUGS (1)
  1. INFANTS IBUPROFEN [Suspect]
     Active Substance: IBUPROFEN
     Dosage: 50 MG IN 1.25ML
     Route: 065

REACTIONS (1)
  - Diarrhoea [Unknown]
